FAERS Safety Report 9235948 (Version 1)
Quarter: 2013Q1

REPORT INFORMATION
  Report Type: Spontaneous
  Country: PR (occurrence: None)
  Receive Date: 20121031
  Receipt Date: 20121031
  Transmission Date: 20140127
  Serious: No
  Sender: FDA-Public Use
  Company Number: PHEH2012US011334

PATIENT
  Age: 31 Year
  Sex: Female
  Weight: 72.6 kg

DRUGS (4)
  1. GILENYA (FTY)CAPSULE, 0.5MG [Suspect]
     Indication: MULTIPLE SCLEROSIS
     Route: 048
     Dates: start: 20120117
  2. ALEVE (NAPROXEN SODIUM) [Concomitant]
  3. VITAMIN B COMPLEX (CALCIUM PANTOPHENATE, NICOTANAMIDE, PYRIDOXINE HYDROCHLRIDE. RIBOFLAVIN, THIAMINE HYDROCHLORIDE) [Concomitant]
  4. VITAMIN C [Concomitant]

REACTIONS (3)
  - Nausea [None]
  - Headache [None]
  - Photophobia [None]
